FAERS Safety Report 19873235 (Version 1)
Quarter: 2021Q3

REPORT INFORMATION
  Report Type: Spontaneous
  Country: CA (occurrence: CA)
  Receive Date: 20210923
  Receipt Date: 20210923
  Transmission Date: 20211014
  Serious: Yes (Other)
  Sender: FDA-Public Use
  Company Number: CA-TEVA-2021-CA-1956393

PATIENT
  Age: 61 Year
  Sex: Male

DRUGS (3)
  1. SILDENAFIL. [Concomitant]
     Active Substance: SILDENAFIL
  2. PROPAFENONE. [Concomitant]
     Active Substance: PROPAFENONE
  3. BISOPROLOL TABLETS [Suspect]
     Active Substance: BISOPROLOL
     Indication: ARRHYTHMIA
     Dosage: 1.5 DOSAGE FORMS DAILY;
     Route: 048

REACTIONS (5)
  - Arrhythmia [Recovered/Resolved]
  - Product quality issue [Recovered/Resolved]
  - Cardiac fibrillation [Recovered/Resolved]
  - Palpitations [Recovered/Resolved]
  - Drug ineffective for unapproved indication [Recovered/Resolved]
